FAERS Safety Report 7367606-1 (Version None)
Quarter: 2011Q1

REPORT INFORMATION
  Report Type: 
  Country: None (occurrence: None)
  Receive Date: 20110322
  Receipt Date: 20110311
  Transmission Date: 20110831
  Serious: Yes (Hospitalization)
  Sender: FDA-Public Use
  Company Number: US-JNJFOC-20110202560

PATIENT
  Sex: Male
  Weight: 111.13 kg

DRUGS (4)
  1. STELARA [Suspect]
     Route: 058
  2. STELARA [Suspect]
     Indication: PSORIASIS
     Route: 058
  3. ISONIAZID [Concomitant]
     Indication: TUBERCULIN TEST POSITIVE
  4. STELARA [Suspect]
     Route: 058

REACTIONS (1)
  - SUBCUTANEOUS ABSCESS [None]
